FAERS Safety Report 23631328 (Version 1)
Quarter: 2024Q1

REPORT INFORMATION
  Report Type: Spontaneous
  Country: NL (occurrence: NL)
  Receive Date: 20240314
  Receipt Date: 20240314
  Transmission Date: 20240409
  Serious: Yes (Other)
  Sender: FDA-Public Use
  Company Number: None

PATIENT
  Age: 75 Year
  Sex: Female
  Weight: 60 kg

DRUGS (1)
  1. QUETIAPINE [Suspect]
     Active Substance: QUETIAPINE
     Indication: Restlessness
     Dosage: 2DD2 , MGA  50MG^ QUETIAPINE  / BRAND NAME NOT SPECIFIED
     Route: 065
     Dates: start: 20231113

REACTIONS (1)
  - Epilepsy [Recovered/Resolved]
